FAERS Safety Report 8249845-0 (Version None)
Quarter: 2012Q2

REPORT INFORMATION
  Report Type: 
  Country: None (occurrence: None)
  Receive Date: 20120402
  Receipt Date: 20120327
  Transmission Date: 20120825
  Serious: Yes (Death)
  Sender: FDA-Public Use
  Company Number: PHHY2012BR026632

PATIENT
  Sex: Female
  Weight: 60 kg

DRUGS (5)
  1. CALTREN [Concomitant]
     Indication: BLOOD PRESSURE
     Dosage: 10 MG 1 TABLET A DAY
  2. CLONAZEPAM [Concomitant]
     Indication: SLEEP DISORDER
     Dosage: 2 MG (1 TABLET A DAY)
  3. EXELON [Suspect]
     Indication: DEMENTIA ALZHEIMER'S TYPE
     Dosage: 18 MG/10CM (1 PATCH A DAY)
     Route: 062
  4. HYDERGINE [Concomitant]
     Indication: CARDIOVASCULAR DISORDER
     Dosage: 4.5 MG 1 TABLET A DAY
  5. TRAVATAN [Concomitant]
     Indication: GLAUCOMA
     Dosage: 1 DRP IN THE EVENING
     Route: 047

REACTIONS (2)
  - PNEUMONIA [None]
  - PULMONARY SEPSIS [None]
